FAERS Safety Report 9134269 (Version 1)
Quarter: 2013Q1

REPORT INFORMATION
  Report Type: Spontaneous
  Country: DE (occurrence: BA)
  Receive Date: 20130304
  Receipt Date: 20130304
  Transmission Date: 20140127
  Serious: No
  Sender: FDA-Public Use
  Company Number: BA-ENDO PHARMACEUTICALS INC.-VANT20120081

PATIENT
  Sex: Male

DRUGS (1)
  1. VANTAS [Suspect]
     Indication: PROSTATE CANCER METASTATIC
     Route: 058

REACTIONS (1)
  - Prostate cancer metastatic [Fatal]
